FAERS Safety Report 15489235 (Version 9)
Quarter: 2019Q3

REPORT INFORMATION
  Report Type: Spontaneous
  Country: US (occurrence: US)
  Receive Date: 20181011
  Receipt Date: 20190923
  Transmission Date: 20191004
  Serious: Yes (Other)
  Sender: FDA-Public Use
  Company Number: US-PFIZER INC-2018409772

PATIENT
  Age: 76 Year
  Sex: Male

DRUGS (2)
  1. SUTENT [Suspect]
     Active Substance: SUNITINIB MALATE
     Dosage: 25 MG, UNK
  2. SUTENT [Suspect]
     Active Substance: SUNITINIB MALATE
     Indication: METASTASES TO KIDNEY
     Dosage: 37.5 MG, UNK

REACTIONS (28)
  - Abdominal pain upper [Unknown]
  - Glossodynia [Unknown]
  - Weight decreased [Unknown]
  - Blood thyroid stimulating hormone increased [Unknown]
  - Cough [Unknown]
  - Pain [Unknown]
  - Constipation [Unknown]
  - Product dose omission [Unknown]
  - Thyroid disorder [Recovering/Resolving]
  - Tongue discomfort [Unknown]
  - Fluid intake reduced [Unknown]
  - Emotional disorder [Unknown]
  - Fatigue [Unknown]
  - Movement disorder [Unknown]
  - Memory impairment [Unknown]
  - Hypoacusis [Unknown]
  - Oral pain [Unknown]
  - Feeling abnormal [Unknown]
  - Lacrimal disorder [Unknown]
  - Decreased appetite [Unknown]
  - Neutrophil count decreased [Unknown]
  - Diabetes mellitus inadequate control [Unknown]
  - Oral discomfort [Unknown]
  - Muscle spasms [Unknown]
  - Dysphonia [Unknown]
  - Bowel movement irregularity [Unknown]
  - Tooth disorder [Unknown]
  - Platelet count decreased [Unknown]
